FAERS Safety Report 5171239-5 (Version None)
Quarter: 2006Q4

REPORT INFORMATION
  Report Type: 
  Country: None (occurrence: None)
  Receive Date: 20061213
  Receipt Date: 20060630
  Transmission Date: 20070319
  Serious: Yes (Other)
  Sender: FDA-Public Use
  Company Number: US-AMGEN-STX184910

PATIENT
  Age: 22 Year
  Sex: Male

DRUGS (2)
  1. ENBREL [Suspect]
     Indication: RHEUMATOID ARTHRITIS
     Route: 065
     Dates: start: 20041201, end: 20050501
  2. REMICADE [Concomitant]
     Route: 065
     Dates: start: 20050601

REACTIONS (1)
  - CHRONIC LYMPHOCYTIC LEUKAEMIA [None]
